FAERS Safety Report 13586064 (Version 2)
Quarter: 2017Q2

REPORT INFORMATION
  Report Type: Report from Study
  Country: CO (occurrence: CO)
  Receive Date: 20170526
  Receipt Date: 20170630
  Transmission Date: 20170830
  Serious: Yes (Other)
  Sender: FDA-Public Use
  Company Number: CO-AMGEN-COLSL2017030793

PATIENT
  Age: 60 Year
  Sex: Male
  Weight: 70 kg

DRUGS (2)
  1. NPLATE [Suspect]
     Active Substance: ROMIPLOSTIM
     Indication: IMMUNE THROMBOCYTOPENIC PURPURA
     Dosage: 100 MUG, QMO
     Route: 058
     Dates: start: 20160923
  2. NPLATE [Suspect]
     Active Substance: ROMIPLOSTIM
     Dosage: 200 MCG, QMO
     Route: 058
     Dates: start: 20170215

REACTIONS (2)
  - Off label use [Not Recovered/Not Resolved]
  - Platelet count abnormal [Recovering/Resolving]

NARRATIVE: CASE EVENT DATE: 2016
